FAERS Safety Report 16895162 (Version 1)
Quarter: 2019Q4

REPORT INFORMATION
  Report Type: Spontaneous
  Country: US (occurrence: US)
  Receive Date: 20191007
  Receipt Date: 20191007
  Transmission Date: 20200122
  Serious: No
  Sender: FDA-Public Use
  Company Number: None

PATIENT
  Age: 51 Year
  Sex: Female
  Weight: 78.75 kg

DRUGS (1)
  1. BUPROPRION XL 300MG TAB ACT [Suspect]
     Active Substance: BUPROPION
     Indication: ANXIETY
     Dosage: ?          QUANTITY:1 TABLET(S);?
     Route: 048
     Dates: start: 20190926, end: 20191007

REACTIONS (5)
  - Anxiety [None]
  - Feeling abnormal [None]
  - Nausea [None]
  - Influenza [None]
  - Product substitution issue [None]

NARRATIVE: CASE EVENT DATE: 20190926
